FAERS Safety Report 25004133 (Version 3)
Quarter: 2025Q2

REPORT INFORMATION
  Report Type: Report from Study
  Country: CO (occurrence: CO)
  Receive Date: 20250224
  Receipt Date: 20250429
  Transmission Date: 20250717
  Serious: Yes (Hospitalization, Other)
  Sender: AMGEN
  Company Number: CO-AMGEN-COLSL2025035230

PATIENT
  Age: 74 Year
  Sex: Male

DRUGS (1)
  1. VECTIBIX [Suspect]
     Active Substance: PANITUMUMAB
     Indication: Colorectal cancer metastatic
     Dosage: 100 MILLIGRAM, Q2WK, BIWEEKLY
     Route: 040
     Dates: start: 20240725, end: 20250208

REACTIONS (5)
  - Urinary tract infection [Recovering/Resolving]
  - Intestinal obstruction [Recovering/Resolving]
  - Haematuria [Not Recovered/Not Resolved]
  - Metastases to bladder [Not Recovered/Not Resolved]
  - Metastases to prostate [Not Recovered/Not Resolved]

NARRATIVE: CASE EVENT DATE: 20250210
